FAERS Safety Report 23965437 (Version 1)
Quarter: 2024Q2

REPORT INFORMATION
  Report Type: Report from Study
  Country: US (occurrence: US)
  Receive Date: 20240612
  Receipt Date: 20240612
  Transmission Date: 20240715
  Serious: Yes (Other)
  Sender: FDA-Public Use
  Company Number: US-ABBVIE-5790680

PATIENT

DRUGS (3)
  1. REFRESH DIGITAL [Suspect]
     Active Substance: CARBOXYMETHYLCELLULOSE SODIUM\GLYCERIN\POLYSORBATE 80
     Indication: Product used for unknown indication
     Dosage: FORM STRENGTH: GLYCERIN 10MG/ML;POLY 80 5MG/ML;CMC 5MG/ML SOLUTION
     Route: 047
  2. REFRESH OPTIVE [Suspect]
     Active Substance: CARBOXYMETHYLCELLULOSE SODIUM\GLYCERIN
     Indication: Product used for unknown indication
     Dosage: FORM STRENGTH: CMC 5MG/ML;GLYCERIN 9MG/ML SOLUTION
     Route: 047
  3. REFRESH OPTIVE ADVANCED [Suspect]
     Active Substance: CARBOXYMETHYLCELLULOSE SODIUM\GLYCERIN\POLYSORBATE 80
     Indication: Product used for unknown indication
     Dosage: FORM STRENGTH: GLYCERIN 10MG/ML;POLY 80 5MG/ML;CMC 5MG/ML SOLUTION
     Route: 047

REACTIONS (1)
  - Medical procedure [Unknown]
